FAERS Safety Report 23648085 (Version 3)
Quarter: 2024Q2

REPORT INFORMATION
  Report Type: Spontaneous
  Country: US (occurrence: US)
  Receive Date: 20240319
  Receipt Date: 20240626
  Transmission Date: 20240716
  Serious: Yes (Hospitalization, Other)
  Sender: FDA-Public Use
  Company Number: US-MYLANLABS-2024M1022540

PATIENT

DRUGS (13)
  1. EPIPEN [Suspect]
     Active Substance: EPINEPHRINE
     Indication: Product used for unknown indication
     Dosage: 1 DOSAGE FORM
     Route: 065
  2. MODERNA COVID-19 VACCINE [Suspect]
     Active Substance: ELASOMERAN
     Indication: COVID-19
     Dosage: UNK
     Route: 030
     Dates: start: 20211004
  3. MODERNA COVID-19 VACCINE [Suspect]
     Active Substance: ELASOMERAN
     Dosage: UNK
     Route: 030
     Dates: start: 20211004
  4. MODERNA COVID-19 VACCINE [Suspect]
     Active Substance: ELASOMERAN
     Indication: COVID-19
     Dosage: 1 DOSAGE FORM
     Route: 065
     Dates: start: 20210906
  5. LEVODOPA [Suspect]
     Active Substance: LEVODOPA
     Indication: Product used for unknown indication
     Dosage: 1 DOSAGE FORM
     Route: 065
  6. CARBIDOPA [Suspect]
     Active Substance: CARBIDOPA
     Indication: Product used for unknown indication
     Dosage: 1 DOSAGE FORM
     Route: 065
  7. MEASLES VIRUS VACCINE, LIVE [Suspect]
     Active Substance: MEASLES VIRUS STRAIN ENDERS^ ATTENUATED EDMONSTON LIVE ANTIGEN
     Indication: Product used for unknown indication
     Dosage: 1 DOSAGE FORM
     Route: 065
  8. ALLEGRA [Concomitant]
     Active Substance: FEXOFENADINE HYDROCHLORIDE
     Dosage: UNK
     Route: 065
  9. FLONASE [Concomitant]
     Active Substance: FLUTICASONE PROPIONATE
     Dosage: UNK
     Route: 065
  10. AMINO ACIDS, SOURCE UNSPECIFIED [Concomitant]
     Active Substance: AMINO ACIDS, SOURCE UNSPECIFIED
     Dosage: UNK
     Route: 065
  11. ACETAMINOPHEN [Concomitant]
     Active Substance: ACETAMINOPHEN
     Dosage: UNK
     Route: 065
  12. CALCIUM CARBONATE\VITAMIN D [Concomitant]
     Active Substance: CALCIUM CARBONATE\VITAMIN D
     Dosage: UNK
     Route: 065
  13. ASCORBIC ACID\ZINC [Concomitant]
     Active Substance: ASCORBIC ACID\ZINC
     Dosage: UNK
     Route: 065

REACTIONS (94)
  - Intracranial pressure increased [Unknown]
  - Suicidal ideation [Unknown]
  - Pulmonary arterial hypertension [Unknown]
  - Major depression [Unknown]
  - Seizure [Unknown]
  - Brain oedema [Unknown]
  - Systemic lupus erythematosus [Unknown]
  - Hallucination [Unknown]
  - Autism spectrum disorder [Unknown]
  - Deafness [Unknown]
  - Near death experience [Unknown]
  - Encephalopathy [Unknown]
  - Brain injury [Unknown]
  - Paralysis [Unknown]
  - Measles [Unknown]
  - Rheumatoid arthritis [Unknown]
  - Bipolar disorder [Unknown]
  - Spinal cord injury [Unknown]
  - Vagus nerve disorder [Unknown]
  - Autoimmune encephalopathy [Unknown]
  - Brain abscess [Unknown]
  - Dementia [Unknown]
  - Anaphylactic shock [Unknown]
  - Anaphylactic reaction [Unknown]
  - Psychotic disorder [Unknown]
  - Tinnitus [Unknown]
  - Vaccination site infection [Unknown]
  - Skin papilloma [Unknown]
  - Lumbar radiculopathy [Unknown]
  - Rotator cuff syndrome [Unknown]
  - Generalised anxiety disorder [Unknown]
  - Cognitive disorder [Unknown]
  - Emphysema [Unknown]
  - Spinal stenosis [Unknown]
  - Chest pain [Unknown]
  - Chronic obstructive pulmonary disease [Unknown]
  - Bronchitis [Unknown]
  - Cyst [Unknown]
  - Concussion [Unknown]
  - Immune system disorder [Unknown]
  - Visual impairment [Unknown]
  - Attention deficit hyperactivity disorder [Unknown]
  - Nodule [Unknown]
  - Gait disturbance [Unknown]
  - Folliculitis [Unknown]
  - Muscle spasms [Unknown]
  - Ocular discomfort [Unknown]
  - Dyspnoea [Unknown]
  - Dysphagia [Unknown]
  - Balance disorder [Unknown]
  - Vaccination site reaction [Unknown]
  - Chest discomfort [Unknown]
  - Pustule [Unknown]
  - Formication [Unknown]
  - Feeling abnormal [Unknown]
  - Swelling [Unknown]
  - Localised infection [Unknown]
  - Irritability [Unknown]
  - Cardiac discomfort [Unknown]
  - Lung disorder [Unknown]
  - Bone disorder [Unknown]
  - Hyperventilation [Unknown]
  - Dehydration [Unknown]
  - Urinary incontinence [Unknown]
  - Anal incontinence [Unknown]
  - Allergy to chemicals [Not Recovered/Not Resolved]
  - Hypokinesia [Unknown]
  - Illness [Unknown]
  - Insomnia [Unknown]
  - Cognitive disorder [Unknown]
  - Infected cyst [Unknown]
  - Asthma [Unknown]
  - Osteitis [Unknown]
  - Therapeutic response unexpected [Unknown]
  - Oral discomfort [Unknown]
  - Psychomotor hyperactivity [Unknown]
  - Gastric infection [Unknown]
  - Vasodilatation [Unknown]
  - Dyskinesia [Unknown]
  - Psychotic disorder [Unknown]
  - COVID-19 [Unknown]
  - Multiple allergies [Unknown]
  - Pain in extremity [Unknown]
  - Primary stabbing headache [Unknown]
  - Drug hypersensitivity [Unknown]
  - Arthralgia [Unknown]
  - Fatigue [Unknown]
  - Gastrointestinal disorder [Unknown]
  - Carpal tunnel syndrome [Unknown]
  - Skin papilloma [Unknown]
  - Erythema [Unknown]
  - Parkinson^s disease [Unknown]
  - Palpitations [Unknown]
  - Tremor [Unknown]

NARRATIVE: CASE EVENT DATE: 20210906
